FAERS Safety Report 6012329-4 (Version None)
Quarter: 2008Q4

REPORT INFORMATION
  Report Type: 
  Country: None (occurrence: None)
  Receive Date: 20081218
  Receipt Date: 20080722
  Transmission Date: 20090506
  Serious: No
  Sender: FDA-Public Use
  Company Number: US-ASTRAZENECA-2008UW15289

PATIENT
  Age: 66 Year
  Sex: Male
  Weight: 108.9 kg

DRUGS (6)
  1. SYMBICORT [Suspect]
     Indication: CHRONIC OBSTRUCTIVE PULMONARY DISEASE
     Dosage: 80/4.5 MCG (2 PUFFS TWICE DAILY)
     Route: 055
     Dates: start: 20071127
  2. METOPROLOL TARTRATE [Suspect]
  3. LIPITOR [Concomitant]
  4. SPIRIVA [Concomitant]
  5. COUMADIN [Concomitant]
  6. LYRICA [Concomitant]

REACTIONS (3)
  - DRUG INTERACTION [None]
  - DYSPNOEA [None]
  - PALPITATIONS [None]
